FAERS Safety Report 12282989 (Version 2)
Quarter: 2016Q2

REPORT INFORMATION
  Report Type: Spontaneous
  Country: US (occurrence: US)
  Receive Date: 20160419
  Receipt Date: 20160601
  Transmission Date: 20160815
  Serious: Yes (Hospitalization, Other)
  Sender: FDA-Public Use
  Company Number: US-BAYER-2016-073789

PATIENT
  Age: 16 Year
  Sex: Female
  Weight: 52.15 kg

DRUGS (3)
  1. IRON [Concomitant]
     Active Substance: IRON
     Indication: IRON DEFICIENCY
     Dosage: UNK
     Dates: start: 2010
  2. VITAMIN D [Concomitant]
     Active Substance: CHOLECALCIFEROL
     Indication: VITAMIN D DEFICIENCY
     Dosage: UNK
     Dates: start: 2010
  3. MIRENA [Suspect]
     Active Substance: LEVONORGESTREL
     Indication: CONTRACEPTION
     Dosage: 20 MCG/24HR, CONT
     Route: 015
     Dates: start: 20130409, end: 20130911

REACTIONS (6)
  - Internal haemorrhage [None]
  - Uterine perforation [None]
  - Abdominal pain [None]
  - Genital haemorrhage [Not Recovered/Not Resolved]
  - Uterine scar [None]
  - Device issue [None]

NARRATIVE: CASE EVENT DATE: 2013
